FAERS Safety Report 20403909 (Version 1)
Quarter: 2022Q1

REPORT INFORMATION
  Report Type: Spontaneous
  Country: US (occurrence: US)
  Receive Date: 20220131
  Receipt Date: 20220131
  Transmission Date: 20220423
  Serious: No
  Sender: FDA-Public Use
  Company Number: US-ELI_LILLY_AND_COMPANY-US202201002783

PATIENT
  Sex: Male

DRUGS (1)
  1. VERZENIO [Suspect]
     Active Substance: ABEMACICLIB
     Indication: Respiration abnormal
     Dosage: UNK UNK, UNKNOWN
     Route: 065
     Dates: start: 202112

REACTIONS (2)
  - Erection increased [Not Recovered/Not Resolved]
  - Off label use [Unknown]
